APPROVED DRUG PRODUCT: DOPAMINE HYDROCHLORIDE
Active Ingredient: DOPAMINE HYDROCHLORIDE
Strength: 40MG/ML
Dosage Form/Route: INJECTABLE;INJECTION
Application: A070058 | Product #001
Applicant: ABRAXIS PHARMACEUTICAL PRODUCTS
Approved: Mar 20, 1985 | RLD: No | RS: No | Type: DISCN